FAERS Safety Report 4649712-5 (Version None)
Quarter: 2005Q2

REPORT INFORMATION
  Report Type: 
  Country: None (occurrence: None)
  Receive Date: 20050427
  Receipt Date: 20050408
  Transmission Date: 20051028
  Serious: Yes (Death, Hospitalization, Other)
  Sender: FDA-Public Use
  Company Number: USA050495265

PATIENT
  Age: 82 Year
  Sex: Female

DRUGS (2)
  1. ZYPREXA [Suspect]
     Indication: ABNORMAL BEHAVIOUR
     Dates: start: 20040501, end: 20041001
  2. ZYPREXA [Suspect]
     Indication: DEMENTIA ALZHEIMER'S TYPE
     Dates: start: 20040501, end: 20041001

REACTIONS (3)
  - AGGRESSION [None]
  - PANCREATITIS [None]
  - PNEUMONIA [None]
